FAERS Safety Report 15343758 (Version 1)
Quarter: 2018Q3

REPORT INFORMATION
  Report Type: Report from Study
  Country: JP (occurrence: JP)
  Receive Date: 20180903
  Receipt Date: 20180903
  Transmission Date: 20181010
  Serious: Yes (Hospitalization, Other)
  Sender: FDA-Public Use
  Company Number: JP-BIOGEN-2018BI00519633

PATIENT
  Age: 3 Year
  Sex: Male
  Weight: 10.4 kg

DRUGS (29)
  1. SOSEGON [Concomitant]
     Active Substance: PENTAZOCINE
     Dosage: ABOUT 5 MG / DAY
     Route: 050
     Dates: start: 20171018, end: 20171018
  2. SULBACILLIN [Concomitant]
     Active Substance: AMPICILLIN SODIUM\SULBACTAM SODIUM
     Route: 050
     Dates: start: 20171004, end: 20171004
  3. SULBACILLIN [Concomitant]
     Active Substance: AMPICILLIN SODIUM\SULBACTAM SODIUM
     Route: 050
     Dates: start: 20171122, end: 20171122
  4. CLARITHROMYCIN. [Concomitant]
     Active Substance: CLARITHROMYCIN
     Route: 065
     Dates: start: 20170912
  5. TSUMURA DAIKENCHUTO EXTRACT GRANULES FOR ETHICAL USE [Concomitant]
     Active Substance: HERBALS
     Route: 065
     Dates: start: 20170912
  6. SPINRAZA [Suspect]
     Active Substance: NUSINERSEN
     Route: 037
     Dates: start: 20171122, end: 20171122
  7. ISOZOL [Concomitant]
     Active Substance: THIAMYLAL SODIUM
     Dosage: ABOUT 50 MG / DAY
     Route: 050
     Dates: start: 20171122, end: 20171122
  8. PULMICORT TURBUHALER [Concomitant]
     Active Substance: BUDESONIDE
     Route: 065
     Dates: start: 20170912
  9. GLYCERIN. [Concomitant]
     Active Substance: GLYCERIN
     Route: 054
     Dates: start: 20170912
  10. SOSEGON [Concomitant]
     Active Substance: PENTAZOCINE
     Dosage: ABOUT 5 MG / DAY
     Route: 050
     Dates: start: 20171004, end: 20171004
  11. SULBACILLIN [Concomitant]
     Active Substance: AMPICILLIN SODIUM\SULBACTAM SODIUM
     Indication: PROPHYLAXIS
     Route: 050
     Dates: start: 20170920, end: 20170920
  12. CARBOCISTEINE [Concomitant]
     Active Substance: CARBOCYSTEINE
     Route: 065
     Dates: start: 20170912
  13. SINGULAIR [Concomitant]
     Active Substance: MONTELUKAST SODIUM
     Dosage: 1 PACKET PER DOSE (1 PACKET PER DAY)
     Route: 065
     Dates: start: 20170912
  14. TSUMURA HANGEKOBOKUTO EXTRACT GRANULES FOR ETHICAL USE [Concomitant]
     Route: 065
     Dates: start: 20170912
  15. SPINRAZA [Suspect]
     Active Substance: NUSINERSEN
     Route: 037
     Dates: start: 20171018, end: 20171018
  16. XYZAL [Concomitant]
     Active Substance: LEVOCETIRIZINE DIHYDROCHLORIDE
     Route: 065
     Dates: start: 20170912
  17. MEPTIN [Concomitant]
     Active Substance: PROCATEROL HYDROCHLORIDE
     Route: 055
     Dates: start: 20170912
  18. ISOZOL [Concomitant]
     Active Substance: THIAMYLAL SODIUM
     Dosage: ABOUT 50 MG / DAY
     Route: 050
     Dates: start: 20171004, end: 20171004
  19. ISOZOL [Concomitant]
     Active Substance: THIAMYLAL SODIUM
     Dosage: ABOUT 50 MG / DAY
     Route: 050
     Dates: start: 20171018, end: 20171018
  20. SOSEGON [Concomitant]
     Active Substance: PENTAZOCINE
     Indication: ANAESTHESIA PROCEDURE
     Dosage: ABOUT 5 MG / DAY
     Route: 050
     Dates: start: 20170920, end: 20170920
  21. AMBROXOL HYDROCHLORIDE [Concomitant]
     Active Substance: AMBROXOL HYDROCHLORIDE
     Route: 065
     Dates: start: 20170912
  22. MAGNESIUM OXIDE. [Concomitant]
     Active Substance: MAGNESIUM OXIDE
     Route: 065
     Dates: start: 20170912
  23. INTAL [Concomitant]
     Active Substance: CROMOLYN SODIUM
     Route: 055
     Dates: start: 20170912
  24. ISOZOL [Concomitant]
     Active Substance: THIAMYLAL SODIUM
     Indication: ANAESTHESIA PROCEDURE
     Dosage: ABOUT 50 MG / DAY
     Route: 050
     Dates: start: 20170920, end: 20170920
  25. SOSEGON [Concomitant]
     Active Substance: PENTAZOCINE
     Dosage: ABOUT 5 MG / DAY
     Route: 050
     Dates: start: 20171122, end: 20171122
  26. MEPTIN [Concomitant]
     Active Substance: PROCATEROL HYDROCHLORIDE
     Route: 065
     Dates: start: 20170912
  27. SULBACILLIN [Concomitant]
     Active Substance: AMPICILLIN SODIUM\SULBACTAM SODIUM
     Route: 050
     Dates: start: 20171018, end: 20171018
  28. SPINRAZA [Suspect]
     Active Substance: NUSINERSEN
     Indication: SPINAL MUSCULAR ATROPHY
     Route: 037
     Dates: start: 20170920, end: 20170920
  29. SPINRAZA [Suspect]
     Active Substance: NUSINERSEN
     Route: 037
     Dates: start: 20171004, end: 20171004

REACTIONS (4)
  - Pneumonia [Recovered/Resolved]
  - Pyrexia [Recovered/Resolved]
  - Respiratory failure [Recovered/Resolved]
  - Pneumonia [Recovered/Resolved]

NARRATIVE: CASE EVENT DATE: 20171110
